FAERS Safety Report 8826900 (Version 1)
Quarter: 2012Q4

REPORT INFORMATION
  Report Type: 
  Country: DE (occurrence: US)
  Receive Date: 20121005
  Receipt Date: 20121005
  Transmission Date: 20130627
  Serious: Yes (Other)
  Sender: FDA-Public Use
  Company Number: FR-ALEXION-A201201828

PATIENT
  Age: 13 Year

DRUGS (1)
  1. SOLIRIS 300MG [Suspect]
     Indication: HAEMOLYTIC URAEMIC SYNDROME
     Dosage: UNK
     Route: 042

REACTIONS (4)
  - Clostridium difficile infection [Unknown]
  - Haemolytic uraemic syndrome [Unknown]
  - Condition aggravated [Unknown]
  - Platelet count decreased [Unknown]
